FAERS Safety Report 20207507 (Version 3)
Quarter: 2022Q1

REPORT INFORMATION
  Report Type: Spontaneous
  Country: ES (occurrence: ES)
  Receive Date: 20211220
  Receipt Date: 20220103
  Transmission Date: 20220423
  Serious: Yes (Life-Threatening, Hospitalization, Other)
  Sender: FDA-Public Use
  Company Number: ES-KRKA-ES2021K14778LIT

PATIENT
  Age: 80 Year
  Sex: Female

DRUGS (20)
  1. FLUOXETINE [Interacting]
     Active Substance: FLUOXETINE HYDROCHLORIDE
     Indication: Depression
     Dosage: 20 MILLIGRAM (20 MG)
  2. FLUOXETINE [Interacting]
     Active Substance: FLUOXETINE HYDROCHLORIDE
     Dosage: UNK
     Route: 048
  3. MOXIFLOXACIN [Interacting]
     Active Substance: MOXIFLOXACIN
     Indication: Skin ulcer
     Dosage: UNK
  4. MOXIFLOXACIN [Interacting]
     Active Substance: MOXIFLOXACIN
     Indication: Ulcer
  5. SOTALOL [Interacting]
     Active Substance: SOTALOL
     Indication: Atrial fibrillation
     Dosage: 80 MILLIGRAM (80 MG)
     Dates: start: 2016
  6. SOTALOL [Interacting]
     Active Substance: SOTALOL
     Indication: Cardioversion
     Dosage: UNK
     Route: 065
     Dates: start: 2016
  7. SOTALOL [Interacting]
     Active Substance: SOTALOL
     Dosage: UNK
     Route: 065
     Dates: start: 2018
  8. IRBESARTAN [Concomitant]
     Active Substance: IRBESARTAN
     Indication: Hypertension
     Dosage: 300 MILLIGRAM (300 MG)
  9. IRBESARTAN [Concomitant]
     Active Substance: IRBESARTAN
     Indication: Hypertension
     Dosage: UNK
     Route: 065
  10. FELODIPINE [Concomitant]
     Active Substance: FELODIPINE
     Indication: Hypertension
     Dosage: 5 MILLIGRAM (5 MG)
  11. FELODIPINE [Concomitant]
     Active Substance: FELODIPINE
     Dosage: UNK
     Route: 065
  12. GLIMEPIRIDE [Concomitant]
     Active Substance: GLIMEPIRIDE
     Indication: Type 2 diabetes mellitus
     Dosage: 20 MILLIGRAM (20 MG)
  13. LINAGLIPTIN [Concomitant]
     Active Substance: LINAGLIPTIN
     Indication: Type 2 diabetes mellitus
     Dosage: 5 MILLIGRAM (5 MG)
  14. LINAGLIPTIN [Concomitant]
     Active Substance: LINAGLIPTIN
     Dosage: UNK
     Route: 065
  15. SINTROM [Concomitant]
     Active Substance: ACENOCOUMAROL
     Indication: Anticoagulation drug level therapeutic
     Dosage: UNK
  16. CHLORTHALIDONE [Concomitant]
     Active Substance: CHLORTHALIDONE
     Indication: Hypertension
     Dosage: 50 MILLIGRAM (50MG)
  17. CHLORTHALIDONE [Concomitant]
     Active Substance: CHLORTHALIDONE
     Dosage: UNK
     Route: 065
  18. ALEUDRIN [Concomitant]
     Indication: Product used for unknown indication
     Dosage: UNK
  19. Sintrol [Concomitant]
     Indication: Anticoagulant therapy
     Dosage: UNK
  20. MAGNESIUM SULFATE [Concomitant]
     Active Substance: MAGNESIUM SULFATE
     Indication: Product used for unknown indication
     Dosage: UNK

REACTIONS (9)
  - Electrocardiogram QT prolonged [Unknown]
  - Torsade de pointes [Unknown]
  - Drug interaction [Recovering/Resolving]
  - Cardio-respiratory arrest [Unknown]
  - Syncope [Recovered/Resolved]
  - Tinnitus [Unknown]
  - Bradyphrenia [Recovered/Resolved]
  - Dizziness [Unknown]
  - Ventricular tachycardia [Recovered/Resolved]
